FAERS Safety Report 7966177-6 (Version None)
Quarter: 2011Q4

REPORT INFORMATION
  Report Type: 
  Country: None (occurrence: None)
  Receive Date: 20111208
  Receipt Date: 20111202
  Transmission Date: 20120403
  Serious: Yes (Hospitalization)
  Sender: FDA-Public Use
  Company Number: PHHY2011DE102925

PATIENT
  Age: 55 Year
  Sex: Male

DRUGS (1)
  1. ZOLEDRONOC ACID [Suspect]
     Indication: OSTEOPOROSIS
     Dosage: 5 MG, UNK
     Route: 042

REACTIONS (9)
  - INFLUENZA LIKE ILLNESS [None]
  - PAIN [None]
  - C-REACTIVE PROTEIN INCREASED [None]
  - HEADACHE [None]
  - PAIN IN EXTREMITY [None]
  - CIRCULATORY COLLAPSE [None]
  - MYALGIA [None]
  - CHILLS [None]
  - PYREXIA [None]
